FAERS Safety Report 11884805 (Version 1)
Quarter: 2016Q1

REPORT INFORMATION
  Report Type: Spontaneous
  Country: NO (occurrence: NO)
  Receive Date: 20160104
  Receipt Date: 20160104
  Transmission Date: 20160526
  Serious: Yes (Other)
  Sender: FDA-Public Use
  Company Number: NO-ROCHE-1687133

PATIENT
  Sex: Male

DRUGS (3)
  1. FOLSYRE [Concomitant]
     Route: 048
  2. METHOTREXATE (METHOTREXATE SODIUM) [Concomitant]
     Active Substance: METHOTREXATE SODIUM
     Indication: RHEUMATOID ARTHRITIS
     Route: 048
  3. MABTHERA [Suspect]
     Active Substance: RITUXIMAB
     Indication: RHEUMATOID ARTHRITIS
     Dosage: DOSED TWICE IN TWO WEEKS AND REPEATED AFTER SEVERAL WEEKS
     Route: 041
     Dates: start: 20151130

REACTIONS (1)
  - Dizziness [Recovered/Resolved]
